FAERS Safety Report 25845839 (Version 1)
Quarter: 2025Q3

REPORT INFORMATION
  Report Type: Spontaneous
  Country: ID (occurrence: ID)
  Receive Date: 20250925
  Receipt Date: 20250925
  Transmission Date: 20251021
  Serious: Yes (Hospitalization, Other)
  Sender: RANBAXY
  Company Number: ID-SUN PHARMACEUTICAL INDUSTRIES INC-2025R1-528611

PATIENT
  Age: 45 Year
  Sex: Female

DRUGS (4)
  1. DIGOXIN [Interacting]
     Active Substance: DIGOXIN
     Indication: Cardiac failure congestive
     Dosage: 0.25 MILLIGRAM, DAILY
     Route: 065
  2. DIGOXIN [Interacting]
     Active Substance: DIGOXIN
     Indication: Atrial fibrillation
  3. FUROSEMIDE [Interacting]
     Active Substance: FUROSEMIDE
     Indication: Cardiac failure congestive
     Dosage: 40 MILLIGRAM, DAILY
     Route: 065
  4. FUROSEMIDE [Interacting]
     Active Substance: FUROSEMIDE
     Indication: Atrial fibrillation

REACTIONS (5)
  - Cardiac failure chronic [Unknown]
  - Ejection fraction decreased [Unknown]
  - Mitral valve stenosis [Unknown]
  - Toxicity to various agents [Unknown]
  - Drug interaction [Unknown]
